FAERS Safety Report 6753942-6 (Version None)
Quarter: 2010Q2

REPORT INFORMATION
  Report Type: 
  Country: None (occurrence: None)
  Receive Date: 20100603
  Receipt Date: 20100525
  Transmission Date: 20101027
  Serious: Yes (Other)
  Sender: FDA-Public Use
  Company Number: A0840733A

PATIENT
  Age: 49 Year
  Sex: Female

DRUGS (3)
  1. PAXIL [Suspect]
     Indication: DEPRESSION
     Dosage: 30MG PER DAY
     Route: 065
     Dates: start: 19900101, end: 20090301
  2. ANTIDEPRESSANT [Concomitant]
  3. KLONOPIN [Concomitant]

REACTIONS (8)
  - ABASIA [None]
  - ASTHENIA [None]
  - CONFUSIONAL STATE [None]
  - DISORIENTATION [None]
  - DYSSTASIA [None]
  - FALL [None]
  - HALLUCINATION [None]
  - MEMORY IMPAIRMENT [None]
